FAERS Safety Report 7088791-5 (Version None)
Quarter: 2010Q4

REPORT INFORMATION
  Report Type: 
  Country: None (occurrence: None)
  Receive Date: 20101108
  Receipt Date: 20101025
  Transmission Date: 20110411
  Serious: Yes (Hospitalization)
  Sender: FDA-Public Use
  Company Number: PHHY2010JP64034

PATIENT
  Age: 83 Year
  Sex: Female

DRUGS (3)
  1. EXFORGE [Suspect]
     Indication: HYPERTENSION
     Dosage: 1 DF DAILY
     Route: 048
  2. MUCOSTA [Suspect]
  3. MAINTATE [Suspect]

REACTIONS (2)
  - HYPONATRAEMIA [None]
  - SKIN DISORDER [None]
